FAERS Safety Report 15761495 (Version 3)
Quarter: 2019Q1

REPORT INFORMATION
  Report Type: Spontaneous
  Country: US (occurrence: US)
  Receive Date: 20181226
  Receipt Date: 20190301
  Transmission Date: 20190417
  Serious: Yes (Hospitalization)
  Sender: FDA-Public Use
  Company Number: US-JNJFOC-20181229070

PATIENT
  Age: 60 Year
  Sex: Male

DRUGS (1)
  1. INVOKANA [Suspect]
     Active Substance: CANAGLIFLOZIN
     Indication: TYPE 2 DIABETES MELLITUS
     Route: 048
     Dates: start: 20140102, end: 201602

REACTIONS (7)
  - Hyperglycaemia [Unknown]
  - Diabetic foot infection [Unknown]
  - Drug ineffective [Unknown]
  - Cellulitis [Unknown]
  - Osteomyelitis [Unknown]
  - Gangrene [Unknown]
  - Toe amputation [Unknown]

NARRATIVE: CASE EVENT DATE: 201601
